FAERS Safety Report 12145728 (Version 1)
Quarter: 2016Q1

REPORT INFORMATION
  Report Type: Spontaneous
  Country: US (occurrence: None)
  Receive Date: 20160303
  Receipt Date: 20160303
  Transmission Date: 20160526
  Serious: Yes (Other)
  Sender: FDA-Public Use
  Company Number: None

PATIENT
  Age: 53 Year
  Sex: Female
  Weight: 103.87 kg

DRUGS (24)
  1. XANAX [Concomitant]
     Active Substance: ALPRAZOLAM
  2. HYDROXYZINE [Concomitant]
     Active Substance: HYDROXYZINE\HYDROXYZINE HYDROCHLORIDE
  3. TRAMADOL ER [Concomitant]
     Active Substance: TRAMADOL HYDROCHLORIDE
  4. VITAMIN D [Concomitant]
     Active Substance: CHOLECALCIFEROL
  5. LACTULOSE. [Concomitant]
     Active Substance: LACTULOSE
  6. PROVIGIL [Concomitant]
     Active Substance: MODAFINIL
  7. OMEGA-3 FATTY ACIDS [Concomitant]
     Active Substance: OMEGA-3 FATTY ACIDS
  8. OMEPRAZOLE. [Concomitant]
     Active Substance: OMEPRAZOLE
  9. BUPROPION. [Concomitant]
     Active Substance: BUPROPION
  10. PAROXETINE [Concomitant]
     Active Substance: PAROXETINE\PAROXETINE HYDROCHLORIDE
  11. PREDNISONE. [Concomitant]
     Active Substance: PREDNISONE
  12. VITAMIN E [Concomitant]
     Active Substance: .ALPHA.-TOCOPHEROL
  13. FLEXERIL [Concomitant]
     Active Substance: CYCLOBENZAPRINE HYDROCHLORIDE
  14. MAGNESIUM [Concomitant]
     Active Substance: MAGNESIUM
  15. ADVAIR DISKUS [Concomitant]
     Active Substance: FLUTICASONE PROPIONATE\SALMETEROL XINAFOATE
  16. NEURONTIN [Concomitant]
     Active Substance: GABAPENTIN
  17. IMITREX [Concomitant]
     Active Substance: SUMATRIPTAN SUCCINATE
  18. RITUXAN [Suspect]
     Active Substance: RITUXIMAB
     Indication: RHEUMATOID ARTHRITIS
     Dosage: 1000MG Q2WEEK X 2 DOSES INTRAVENOUS
     Route: 042
     Dates: start: 20160302, end: 20160302
  19. SYNTHROID [Concomitant]
     Active Substance: LEVOTHYROXINE SODIUM
  20. METHOTREXATE [Concomitant]
     Active Substance: METHOTREXATE
  21. FOLIC ACID. [Concomitant]
     Active Substance: FOLIC ACID
  22. NORCO [Concomitant]
     Active Substance: ACETAMINOPHEN\HYDROCODONE BITARTRATE
  23. MELOXICAM. [Concomitant]
     Active Substance: MELOXICAM
  24. HYDROXYCHLOROQUINE [Concomitant]
     Active Substance: HYDROXYCHLOROQUINE

REACTIONS (6)
  - Paraesthesia [None]
  - Pruritus [None]
  - Pharyngeal paraesthesia [None]
  - Infusion related reaction [None]
  - Throat irritation [None]
  - Paraesthesia oral [None]

NARRATIVE: CASE EVENT DATE: 20160302
